FAERS Safety Report 8291438-3 (Version None)
Quarter: 2012Q2

REPORT INFORMATION
  Report Type: 
  Country: None (occurrence: None)
  Receive Date: 20120417
  Receipt Date: 20120410
  Transmission Date: 20120825
  Serious: Yes (Hospitalization)
  Sender: FDA-Public Use
  Company Number: US-BAYER-2012-008633

PATIENT
  Age: 47 Year
  Sex: Female
  Weight: 77.098 kg

DRUGS (21)
  1. YAZ [Suspect]
     Indication: ACNE
  2. GEODON [Concomitant]
     Dosage: 40 UNK, UNK
  3. TRAZODONE HCL [Concomitant]
     Dosage: 1000 MG, HS
  4. YAZ [Suspect]
     Indication: CONTRACEPTION
     Dosage: UNK
     Dates: start: 20040101, end: 20100101
  5. NUVIGIL [Concomitant]
     Dosage: UNK UNK, QD
  6. SYMBICORT [Concomitant]
     Dosage: UNK UNK, BID
     Route: 045
  7. UNKNOWN [Concomitant]
     Indication: GASTROOESOPHAGEAL REFLUX DISEASE
  8. YASMIN [Suspect]
     Indication: CONTRACEPTION
     Dosage: UNK
     Dates: start: 20040101, end: 20100101
  9. PROTONIX [Concomitant]
     Dosage: 40 MG, UNK
     Route: 042
     Dates: start: 20100119, end: 20100120
  10. YAZ [Suspect]
     Indication: PREMENSTRUAL SYNDROME
  11. LEVOTHYROXINE SODIUM [Concomitant]
     Indication: THYROID DISORDER
     Dosage: UNK
     Dates: start: 20030101
  12. SYNTHROID [Concomitant]
     Dosage: 75 MCG/24HR, UNK
  13. NEUPOGEN [Concomitant]
  14. LOVENOX [Concomitant]
     Dosage: 40 MG, UNK
     Route: 058
     Dates: start: 20100119
  15. CIPROFLOXACIN [Concomitant]
     Dosage: 400 MG, BID
  16. YASMIN [Suspect]
     Indication: ACNE
  17. YASMIN [Suspect]
     Indication: PREMENSTRUAL SYNDROME
  18. CYMBALTA [Concomitant]
     Dosage: 90 MG, QD
  19. PERCOCET [Concomitant]
     Indication: RENAL COLIC
     Dosage: UNK UNK, PRN
  20. NASONEX [Concomitant]
     Dosage: UNK UNK, PRN
  21. PREDNISONE TAB [Concomitant]

REACTIONS (1)
  - CEREBROVASCULAR ACCIDENT [None]
